FAERS Safety Report 5289783-9 (Version None)
Quarter: 2007Q2

REPORT INFORMATION
  Report Type: 
  Country: None (occurrence: None)
  Receive Date: 20070406
  Receipt Date: 20070328
  Transmission Date: 20071010
  Serious: Yes (Other)
  Sender: FDA-Public Use
  Company Number: GB-PFIZER INC-2007025418

PATIENT
  Sex: Male

DRUGS (2)
  1. EXUBERA [Suspect]
     Indication: DIABETES MELLITUS INSULIN-DEPENDENT
     Route: 055
  2. DRUG, UNSPECIFIED [Concomitant]

REACTIONS (1)
  - HAEMOPTYSIS [None]
